FAERS Safety Report 8372383-1 (Version None)
Quarter: 2012Q2

REPORT INFORMATION
  Report Type: 
  Country: None (occurrence: None)
  Receive Date: 20120521
  Receipt Date: 20120514
  Transmission Date: 20120825
  Serious: Yes (Other)
  Sender: FDA-Public Use
  Company Number: US-AMGEN-USASP2012026513

PATIENT
  Age: 57 Year
  Sex: Male
  Weight: 85.261 kg

DRUGS (20)
  1. DIOVAN [Concomitant]
     Dosage: 40 MG, QD,
     Route: 048
     Dates: start: 20120510
  2. GLIPIZIDE [Concomitant]
     Dosage: 5 MG, QD,
     Route: 048
     Dates: start: 20120510
  3. LEVOTHYROXINE SODIUM [Concomitant]
     Dosage: 0.112 MG, QD
     Route: 048
     Dates: start: 20120510
  4. VYTONE [Concomitant]
     Dosage: 1%-1% BID
     Route: 061
     Dates: start: 20120510
  5. INTELENCE [Concomitant]
     Dosage: 200 MG, QD
     Route: 048
     Dates: start: 20120508
  6. ALLEGRA-D 12 HOUR [Concomitant]
     Dosage: 60-120 MG,
     Route: 048
     Dates: start: 20120508
  7. FLONASE [Concomitant]
     Dosage: 0.05 MG/L, QD, 2 PUFFS NAS
     Dates: start: 20120514
  8. SINGULAIR [Concomitant]
     Dosage: 10 MG, QD
     Route: 048
     Dates: start: 20120508
  9. MINOCYCLINE HCL [Concomitant]
     Dosage: 100 MG, QD
     Route: 048
     Dates: start: 20120508
  10. LOPERAMIDE [Concomitant]
     Dosage: 2 MG, BID
     Route: 048
     Dates: start: 20120510
  11. ANDROGEL [Concomitant]
     Dosage: 1.25G/ACTUATION20.25 MG/1.25G
     Route: 062
     Dates: start: 20120508
  12. ENBREL [Suspect]
     Indication: PSORIATIC ARTHROPATHY
     Dosage: 25 MG, 2 TIMES/WK
     Route: 058
     Dates: start: 20110512, end: 20120505
  13. VALTREX [Concomitant]
     Dosage: 1 G, QD,
     Route: 048
     Dates: start: 20120510
  14. DOXAZOSIN MESYLATE [Concomitant]
     Dosage: 2 MG, BID,
     Route: 048
     Dates: start: 20120510
  15. OMNARIS [Concomitant]
     Dosage: 0.050 MG, 2 PUFFS NAS
     Dates: start: 20120510
  16. ZIAGEN [Concomitant]
     Dosage: 300 MG, QD
     Route: 048
     Dates: start: 20120510
  17. ISENTRESS [Concomitant]
     Dosage: 400 MG, QD
     Route: 048
     Dates: start: 20120508
  18. AVAPRO [Concomitant]
     Dosage: 150 MG, QD
     Route: 048
     Dates: start: 20120508
  19. CALCIPOTRIENE [Concomitant]
     Dosage: 0.005 %, BID
     Route: 061
     Dates: start: 20120510
  20. ALPRAZOLAM [Concomitant]
     Dosage: 2 MG, QHS
     Route: 048
     Dates: start: 20120508

REACTIONS (13)
  - HYPOGLYCAEMIA [None]
  - DYSARTHRIA [None]
  - DRUG INEFFECTIVE [None]
  - INJECTION SITE PRURITUS [None]
  - PARAESTHESIA [None]
  - DIZZINESS [None]
  - BLOOD PRESSURE INCREASED [None]
  - BLOOD PRESSURE DECREASED [None]
  - ASTHENIA [None]
  - INJECTION SITE ERYTHEMA [None]
  - PRESYNCOPE [None]
  - PSORIATIC ARTHROPATHY [None]
  - HYPOAESTHESIA [None]
